FAERS Safety Report 7902040-4 (Version None)
Quarter: 2011Q4

REPORT INFORMATION
  Report Type: 
  Country: None (occurrence: None)
  Receive Date: 20111108
  Receipt Date: 20111102
  Transmission Date: 20120403
  Serious: Yes (Hospitalization)
  Sender: FDA-Public Use
  Company Number: US-GLAXOSMITHKLINE-A0951641A

PATIENT
  Age: 71 Year
  Sex: Female

DRUGS (2)
  1. UNKNOWN [Concomitant]
  2. FLOVENT [Suspect]
     Indication: EMPHYSEMA
     Dosage: 1PUFF TWICE PER DAY
     Route: 055
     Dates: start: 20101101

REACTIONS (3)
  - PNEUMONIA [None]
  - DYSPNOEA [None]
  - PRODUCT QUALITY ISSUE [None]
